FAERS Safety Report 23983157 (Version 2)
Quarter: 2024Q3

REPORT INFORMATION
  Report Type: Report from Study
  Country: MX (occurrence: MX)
  Receive Date: 20240617
  Receipt Date: 20240705
  Transmission Date: 20241017
  Serious: Yes (Other)
  Sender: BIOVITRUM
  Company Number: MX-AstraZeneca-2023A293114

PATIENT
  Age: 74 Day
  Sex: Male
  Weight: 7.8 kg

DRUGS (9)
  1. SYNAGIS [Suspect]
     Active Substance: PALIVIZUMAB
     Indication: Antiviral prophylaxis
     Route: 030
  2. SYNAGIS [Suspect]
     Active Substance: PALIVIZUMAB
     Dosage: MONTHLY
     Route: 030
     Dates: start: 20231219, end: 20231219
  3. SYNAGIS [Suspect]
     Active Substance: PALIVIZUMAB
     Dosage: MONTHLY
     Route: 030
     Dates: start: 20240216, end: 20240216
  4. SYNAGIS [Suspect]
     Active Substance: PALIVIZUMAB
     Dosage: MONTHLY
     Route: 030
     Dates: start: 20240524, end: 20240524
  5. SYNAGIS [Suspect]
     Active Substance: PALIVIZUMAB
     Dosage: MONTHLY
     Route: 030
     Dates: start: 20240625, end: 20240625
  6. FERROUS SULFATE [Concomitant]
     Active Substance: FERROUS SULFATE
     Indication: Product used for unknown indication
  7. VITAMIN A [Concomitant]
     Active Substance: VITAMIN A
     Indication: Product used for unknown indication
  8. VITAMIN C [Concomitant]
     Active Substance: ASCORBIC ACID
     Indication: Product used for unknown indication
  9. VITAMIN D [Concomitant]
     Active Substance: VITAMIN D NOS
     Indication: Product used for unknown indication

REACTIONS (6)
  - Anaemia [Not Recovered/Not Resolved]
  - Pain [Recovered/Resolved]
  - Insomnia [Recovered/Resolved]
  - Feeling hot [Recovered/Resolved]
  - Injection site pain [Recovered/Resolved]
  - Product administration error [Unknown]

NARRATIVE: CASE EVENT DATE: 20231201
